FAERS Safety Report 6173534-X (Version None)
Quarter: 2009Q2

REPORT INFORMATION
  Report Type: 
  Country: None (occurrence: None)
  Receive Date: 20090430
  Receipt Date: 20090421
  Transmission Date: 20091009
  Serious: Yes (Hospitalization)
  Sender: FDA-Public Use
  Company Number: B0562712A

PATIENT
  Age: 59 Year
  Sex: Male
  Weight: 83 kg

DRUGS (4)
  1. AVANDAMET [Suspect]
     Indication: DRUG USE FOR UNKNOWN INDICATION
     Route: 065
  2. UNKNOWN DRUG [Concomitant]
     Route: 065
  3. COLOFAC [Concomitant]
     Route: 065
  4. LISINOPRIL [Concomitant]
     Route: 065

REACTIONS (5)
  - CLOSTRIDIAL INFECTION [None]
  - DIARRHOEA [None]
  - FRACTURE [None]
  - MOBILITY DECREASED [None]
  - ROAD TRAFFIC ACCIDENT [None]
